FAERS Safety Report 11643466 (Version 1)
Quarter: 2015Q4

REPORT INFORMATION
  Report Type: Spontaneous
  Country: US (occurrence: None)
  Receive Date: 20151019
  Receipt Date: 20151019
  Transmission Date: 20160304
  Serious: Yes (Death)
  Sender: FDA-Public Use
  Company Number: None

PATIENT
  Age: 37 Year
  Sex: Female
  Weight: 63.5 kg

DRUGS (1)
  1. ZOLOFT (GENERIC) 50 MG CVS PHARMACY [Suspect]
     Active Substance: SERTRALINE HYDROCHLORIDE
     Indication: DEPRESSION
     Route: 048
     Dates: start: 20150817, end: 20150925

REACTIONS (6)
  - Agitation [None]
  - Thinking abnormal [None]
  - Psychotic disorder [None]
  - Gun shot wound [None]
  - Condition aggravated [None]
  - Completed suicide [None]

NARRATIVE: CASE EVENT DATE: 20150925
